FAERS Safety Report 4678248-0 (Version None)
Quarter: 2005Q2

REPORT INFORMATION
  Report Type: 
  Country: None (occurrence: None)
  Receive Date: 20050601
  Receipt Date: 20050519
  Transmission Date: 20051028
  Serious: Yes (Death, Life-Threatening, Hospitalization)
  Sender: FDA-Public Use
  Company Number: 200511362EU

PATIENT
  Age: 69 Year
  Sex: Male

DRUGS (12)
  1. CERUBIDINE [Suspect]
     Dates: start: 20050209, end: 20050307
  2. ASPARAGINASE [Suspect]
     Indication: ACUTE LYMPHOCYTIC LEUKAEMIA
     Dates: start: 20050209, end: 20050307
  3. ONCOVIN [Suspect]
     Indication: ACUTE LYMPHOCYTIC LEUKAEMIA
     Dates: start: 20050209, end: 20050307
  4. METHOTREXATE [Suspect]
     Indication: ACUTE LYMPHOCYTIC LEUKAEMIA
     Dates: start: 20050209, end: 20050307
  5. ENDOXAN [Suspect]
     Indication: ACUTE LYMPHOCYTIC LEUKAEMIA
     Dates: start: 20050209, end: 20050307
  6. VFEND [Suspect]
     Dates: start: 20050220, end: 20050308
  7. VALTREX [Suspect]
     Dates: start: 20050220, end: 20050308
  8. FUNGIZONE [Suspect]
     Dates: start: 20050201, end: 20050201
  9. TAZOBACTAM [Suspect]
     Dates: start: 20050212, end: 20050304
  10. TORSEMIDE [Concomitant]
     Dates: start: 20050201, end: 20050301
  11. NAVOBAN [Concomitant]
     Dates: start: 20050201, end: 20050301
  12. BACTRIM [Concomitant]
     Dates: start: 20050201, end: 20050301

REACTIONS (22)
  - ALANINE AMINOTRANSFERASE INCREASED [None]
  - AMMONIA INCREASED [None]
  - ASPARTATE AMINOTRANSFERASE INCREASED [None]
  - BLOOD ALBUMIN DECREASED [None]
  - BLOOD ALKALINE PHOSPHATASE INCREASED [None]
  - BLOOD BILIRUBIN INCREASED [None]
  - BLOOD UREA INCREASED [None]
  - BRONCHOPULMONARY ASPERGILLOSIS [None]
  - CARDIAC DISORDER [None]
  - CHOLESTASIS [None]
  - COMA HEPATIC [None]
  - ENCEPHALOPATHY [None]
  - GAMMA-GLUTAMYLTRANSFERASE INCREASED [None]
  - GASTROINTESTINAL HAEMORRHAGE [None]
  - HAEMATEMESIS [None]
  - HEPATIC STEATOSIS [None]
  - HEPATIC TRAUMA [None]
  - HEPATOCELLULAR DAMAGE [None]
  - HEPATOTOXICITY [None]
  - MULTI-ORGAN FAILURE [None]
  - PROTEIN TOTAL DECREASED [None]
  - RENAL FAILURE [None]
